FAERS Safety Report 17207348 (Version 1)
Quarter: 2019Q4

REPORT INFORMATION
  Report Type: Spontaneous
  Country: CN (occurrence: CN)
  Receive Date: 20191227
  Receipt Date: 20191227
  Transmission Date: 20200122
  Serious: Yes (Other)
  Sender: FDA-Public Use
  Company Number: CN-JNJFOC-20191235260

PATIENT
  Age: 64 Year
  Sex: Male
  Weight: 65 kg

DRUGS (2)
  1. RIVAROXABAN [Suspect]
     Active Substance: RIVAROXABAN
     Indication: ANTICOAGULANT THERAPY
     Dosage: 10 MG, BID
     Route: 048
     Dates: start: 20190502, end: 20190526
  2. RIVAROXABAN [Suspect]
     Active Substance: RIVAROXABAN
     Indication: DEEP VEIN THROMBOSIS

REACTIONS (2)
  - Product prescribing issue [Unknown]
  - Liver injury [Recovering/Resolving]

NARRATIVE: CASE EVENT DATE: 20190502
